FAERS Safety Report 10184593 (Version 2)
Quarter: 2014Q3

REPORT INFORMATION
  Report Type: Spontaneous
  Country: US (occurrence: US)
  Receive Date: 20140521
  Receipt Date: 20140820
  Transmission Date: 20150326
  Serious: Yes (Death, Disabling)
  Sender: FDA-Public Use
  Company Number: US-BRISTOL-MYERS SQUIBB COMPANY-20751335

PATIENT
  Age: 61 Year
  Sex: Female

DRUGS (1)
  1. YERVOY [Suspect]
     Active Substance: IPILIMUMAB
     Indication: METASTATIC MALIGNANT MELANOMA
     Dosage: 1 DF= 4 DOSES?3MG/KG,240MG?10JAN14,31JAN14,21FEB14,14MAR14
     Route: 042
     Dates: start: 20140110

REACTIONS (2)
  - Malignant neoplasm progression [Fatal]
  - Colitis ulcerative [Recovering/Resolving]

NARRATIVE: CASE EVENT DATE: 20140110
